FAERS Safety Report 7792817-0 (Version None)
Quarter: 2011Q4

REPORT INFORMATION
  Report Type: 
  Country: None (occurrence: None)
  Receive Date: 20111003
  Receipt Date: 20110929
  Transmission Date: 20120403
  Serious: Yes (Hospitalization)
  Sender: FDA-Public Use
  Company Number: US-GLAXOSMITHKLINE-A0940918A

PATIENT
  Age: 41 Year
  Sex: Female

DRUGS (2)
  1. LAMICTAL XR [Suspect]
     Indication: CONVULSION
     Dosage: 50MG PER DAY
     Route: 048
     Dates: start: 20110628, end: 20110712
  2. THYROID MEDICATION [Concomitant]

REACTIONS (10)
  - BRONCHITIS [None]
  - SPUTUM INCREASED [None]
  - SKIN DISCOLOURATION [None]
  - SKIN EXFOLIATION [None]
  - THERMAL BURN [None]
  - HEADACHE [None]
  - URTICARIA [None]
  - STEVENS-JOHNSON SYNDROME [None]
  - PAIN [None]
  - BLISTER [None]
